FAERS Safety Report 7552348-X (Version None)
Quarter: 2011Q2

REPORT INFORMATION
  Report Type: 
  Country: None (occurrence: None)
  Receive Date: 20110616
  Receipt Date: 20110614
  Transmission Date: 20111010
  Serious: Yes (Life-Threatening, Hospitalization, Other)
  Sender: FDA-Public Use
  Company Number: AU-AMGEN-KDC428896

PATIENT

DRUGS (9)
  1. XELODA [Concomitant]
  2. ENOXAPARIN SODIUM [Concomitant]
     Dosage: 100 A?G, UNK
  3. DURAGESIC-100 [Concomitant]
     Dosage: 25 MG, UNK
     Dates: start: 20100528
  4. PANITUMUMAB [Suspect]
     Indication: GASTROOESOPHAGEAL CANCER
  5. TAXOTERE [Concomitant]
  6. PANTOPRAZOLE [Concomitant]
     Dosage: 40 MG, QD
     Dates: start: 20100101
  7. MICARDIS [Concomitant]
     Dosage: UNK UNK, QD
     Dates: start: 20100101
  8. ACETAMINOPHEN [Concomitant]
     Dosage: 20 ML, QD
  9. CISPLATIN [Concomitant]

REACTIONS (3)
  - ATRIAL FIBRILLATION [None]
  - DEEP VEIN THROMBOSIS [None]
  - PULMONARY EMBOLISM [None]
